FAERS Safety Report 7624198-7 (Version None)
Quarter: 2011Q3

REPORT INFORMATION
  Report Type: 
  Country: None (occurrence: None)
  Receive Date: 20110720
  Receipt Date: 20110720
  Transmission Date: 20111222
  Serious: Yes (Hospitalization)
  Sender: FDA-Public Use
  Company Number: None

PATIENT
  Age: 85 Year
  Sex: Male

DRUGS (11)
  1. WARFARIN SODIUM [Interacting]
  2. DILTIAZEM [Interacting]
  3. ASPIRIN [Interacting]
  4. COMBIVENT [Interacting]
  5. PREDNISONE [Interacting]
  6. WARFARIN SODIUM [Interacting]
  7. DIGOXIN [Suspect]
     Indication: ATRIAL FIBRILLATION
     Dosage: 0.25MG
     Route: 048
     Dates: start: 20110509, end: 20110520
  8. SYNTHROID [Interacting]
  9. FUROSEMIDE [Interacting]
  10. TRAMADOL HCL [Interacting]
  11. MAG OXIDE [Interacting]

REACTIONS (6)
  - TOXICITY TO VARIOUS AGENTS [None]
  - NAUSEA [None]
  - DECREASED APPETITE [None]
  - CARDIOACTIVE DRUG LEVEL INCREASED [None]
  - ASTHENIA [None]
  - BRADYCARDIA [None]
